FAERS Safety Report 25674785 (Version 1)
Quarter: 2025Q3

REPORT INFORMATION
  Report Type: Report from Study
  Country: TR (occurrence: TR)
  Receive Date: 20250813
  Receipt Date: 20250813
  Transmission Date: 20251021
  Serious: Yes (Death, Other)
  Sender: VIIV
  Company Number: TR-VIIV HEALTHCARE-TR2025GSK103305

PATIENT
  Sex: Male

DRUGS (4)
  1. ZIDOVUDINE [Suspect]
     Active Substance: ZIDOVUDINE
     Indication: HIV infection
  2. ZIDOVUDINE [Suspect]
     Active Substance: ZIDOVUDINE
     Indication: HIV infection
  3. LOPINAVIR [Suspect]
     Active Substance: LOPINAVIR
     Indication: HIV infection
  4. RITONAVIR [Suspect]
     Active Substance: RITONAVIR
     Indication: HIV infection

REACTIONS (9)
  - Human immunodeficiency virus transmission [Unknown]
  - HIV infection [Unknown]
  - Small for dates baby [Unknown]
  - General physical health deterioration [Fatal]
  - Respiratory failure [Fatal]
  - Pneumonia klebsiella [Fatal]
  - Pneumonia salmonella [Fatal]
  - Beta haemolytic streptococcal infection [Fatal]
  - Foetal exposure during pregnancy [Unknown]
